FAERS Safety Report 13737754 (Version 3)
Quarter: 2018Q1

REPORT INFORMATION
  Report Type: Report from Study
  Country: US (occurrence: US)
  Receive Date: 20170710
  Receipt Date: 20180126
  Transmission Date: 20180508
  Serious: Yes (Other)
  Sender: FDA-Public Use
  Company Number: US-SAOL THERAPEUTICS-2016SAO00700

PATIENT
  Age: 62 Year
  Sex: Male

DRUGS (46)
  1. COMPOUNDED BACLOFEN [Suspect]
     Active Substance: BACLOFEN
     Indication: PAIN
     Dosage: 66.10 ?G, \DAY
     Dates: start: 20150815, end: 20151022
  2. COMPOUNDED BACLOFEN [Suspect]
     Active Substance: BACLOFEN
     Dosage: 102.28 ?G, \DAY- MAX
     Dates: start: 20151022
  3. BUPIVACAINE. [Suspect]
     Active Substance: BUPIVACAINE
     Dosage: 2.258 MG, \DAY
     Dates: start: 20170112
  4. DILAUDID [Suspect]
     Active Substance: HYDROMORPHONE HYDROCHLORIDE
     Dosage: 0.6258 MG, \DAY- MAX
     Dates: start: 20150820, end: 20151022
  5. DILAUDID [Suspect]
     Active Substance: HYDROMORPHONE HYDROCHLORIDE
     Dosage: 30.01 ?G, \DAY - MAX
     Dates: start: 20170105, end: 20170112
  6. DILAUDID [Suspect]
     Active Substance: HYDROMORPHONE HYDROCHLORIDE
     Dosage: 239.37 ?G, \DAY - MAX
     Dates: start: 20170921
  7. CLONIDINE. [Suspect]
     Active Substance: CLONIDINE
     Route: 037
  8. COMPOUNDED BACLOFEN [Suspect]
     Active Substance: BACLOFEN
     Dosage: 22.58 ?G, \DAY
     Dates: start: 20170112
  9. COMPOUNDED BACLOFEN [Suspect]
     Active Substance: BACLOFEN
     Dosage: 54.96 ?G, \DAY
     Dates: start: 20151022
  10. LYRICA [Suspect]
     Active Substance: PREGABALIN
  11. COMPOUNDED BACLOFEN [Suspect]
     Active Substance: BACLOFEN
     Dosage: 58.30 ?G, \DAY-MAX
     Dates: start: 20170112
  12. BUPIVACAINE. [Suspect]
     Active Substance: BUPIVACAINE
     Dosage: 4.005 MG, \DAY
     Route: 037
     Dates: end: 20160812
  13. DILAUDID [Suspect]
     Active Substance: HYDROMORPHONE HYDROCHLORIDE
     Dosage: 36.69 ?G, \DAY
     Dates: start: 20171017
  14. DILAUDID [Suspect]
     Active Substance: HYDROMORPHONE HYDROCHLORIDE
     Dosage: 60.08 ?G, \DAY
     Dates: start: 20170921, end: 20171017
  15. COMPOUNDED BACLOFEN [Suspect]
     Active Substance: BACLOFEN
     Indication: POST LAMINECTOMY SYNDROME
     Dosage: 40.05 ?G, \DAY
     Route: 037
     Dates: end: 20160812
  16. BUPIVACAINE. [Suspect]
     Active Substance: BUPIVACAINE
     Dosage: 4.006 MG, \DAY
     Route: 037
     Dates: start: 20160812
  17. DILAUDID [Suspect]
     Active Substance: HYDROMORPHONE HYDROCHLORIDE
     Dosage: 0.3305 MG, \DAY
     Dates: start: 20150820, end: 20151022
  18. DILAUDID [Suspect]
     Active Substance: HYDROMORPHONE HYDROCHLORIDE
     Dosage: 36.69 ?G, \DAY
     Dates: start: 20171017
  19. COMPOUNDED BACLOFEN [Suspect]
     Active Substance: BACLOFEN
     Dosage: UNK
     Dates: start: 20171017
  20. COMPOUNDED BACLOFEN [Suspect]
     Active Substance: BACLOFEN
     Indication: POST LAMINECTOMY SYNDROME
     Dosage: 40.05 ?G, \DAY
     Route: 037
     Dates: start: 20160812
  21. BUPIVACAINE. [Suspect]
     Active Substance: BUPIVACAINE
     Dosage: 0.734 MG, \DAY
     Dates: start: 20171017
  22. DILAUDID [Suspect]
     Active Substance: HYDROMORPHONE HYDROCHLORIDE
     Dosage: 0.5114 MG, \DAY - MAX
     Dates: start: 20151022
  23. COMPOUNDED BACLOFEN [Suspect]
     Active Substance: BACLOFEN
     Indication: PAIN
     Dosage: 7.34 ?G, \DAY
     Dates: start: 20171017
  24. COMPOUNDED BACLOFEN [Suspect]
     Active Substance: BACLOFEN
     Dosage: 25.97 ?G, \DAY
     Dates: start: 20170105, end: 20170112
  25. COMPOUNDED BACLOFEN [Suspect]
     Active Substance: BACLOFEN
     Dosage: 61.65 ?G, \DAY-MAX
     Dates: start: 20170105, end: 20170112
  26. COMPOUNDED BACLOFEN [Suspect]
     Active Substance: BACLOFEN
     Dosage: 12.02 ?G, \DAY
     Dates: start: 20170921, end: 20171017
  27. COMPOUNDED BACLOFEN [Suspect]
     Active Substance: BACLOFEN
     Dosage: 125.17 ?G, \DAY-MAX
     Dates: start: 20150815, end: 20151022
  28. BUPIVACAINE. [Suspect]
     Active Substance: BUPIVACAINE
     Dosage: 6.165 MG, \DAY- MAX
     Dates: start: 20170105, end: 20170112
  29. DILAUDID [Suspect]
     Active Substance: HYDROMORPHONE HYDROCHLORIDE
     Dosage: 0.2003 MG, \DAY
     Route: 037
     Dates: end: 20160812
  30. DILAUDID [Suspect]
     Active Substance: HYDROMORPHONE HYDROCHLORIDE
     Dosage: 0.2748 MG, \DAY
     Dates: start: 20151022
  31. DILAUDID [Suspect]
     Active Substance: HYDROMORPHONE HYDROCHLORIDE
     Dosage: 291.52 ?G, \DAY-MAX
     Dates: start: 20170112
  32. BUPIVACAINE. [Suspect]
     Active Substance: BUPIVACAINE
     Dosage: 5.830 MG/DAY- MAX
     Dates: start: 20170112
  33. BUPIVACAINE. [Suspect]
     Active Substance: BUPIVACAINE
     Dosage: 4.787 MG, \DAY- MAX
     Dates: start: 20170921
  34. DILAUDID [Suspect]
     Active Substance: HYDROMORPHONE HYDROCHLORIDE
     Dosage: 129.84 ?G, \DAY
     Dates: start: 20170105, end: 20170112
  35. DILAUDID [Suspect]
     Active Substance: HYDROMORPHONE HYDROCHLORIDE
     Dosage: 112.89 ?G, \DAY
     Dates: start: 20170112
  36. ORAL HYDROMORPHONE [Concomitant]
  37. COMPOUNDED BACLOFEN [Suspect]
     Active Substance: BACLOFEN
     Dosage: 47.87 ?G, \DAY - MAX
     Dates: start: 20170921
  38. COMPOUNDED BACLOFEN [Suspect]
     Active Substance: BACLOFEN
     Dosage: 7.34 ?G, \DAY
     Dates: start: 20171017
  39. BUPIVACAINE. [Suspect]
     Active Substance: BUPIVACAINE
     Dosage: 6.610 MG, \DAY
     Dates: start: 20150820, end: 20151022
  40. BUPIVACAINE. [Suspect]
     Active Substance: BUPIVACAINE
     Dosage: 12.517 MG, \DAY - MAX
     Dates: start: 20150820, end: 20151022
  41. BUPIVACAINE. [Suspect]
     Active Substance: BUPIVACAINE
     Dosage: 5.496 MG, \DAY
     Dates: start: 20151022
  42. BUPIVACAINE. [Suspect]
     Active Substance: BUPIVACAINE
     Dosage: 10.228 MG, \DAY - MAX
     Dates: start: 20151022
  43. BUPIVACAINE. [Suspect]
     Active Substance: BUPIVACAINE
     Dosage: 2.597 MG, \DAY
     Dates: start: 20170105, end: 20170112
  44. BUPIVACAINE. [Suspect]
     Active Substance: BUPIVACAINE
     Dosage: 1.202 MG, \DAY
     Dates: start: 20170921, end: 20171017
  45. BUPIVACAINE. [Suspect]
     Active Substance: BUPIVACAINE
     Dosage: 0.734 MG, \DAY
     Dates: start: 20171017
  46. DILAUDID [Suspect]
     Active Substance: HYDROMORPHONE HYDROCHLORIDE
     Dosage: 200.26 ?G, \DAY
     Route: 037
     Dates: end: 20160812

REACTIONS (8)
  - Fall [Recovered/Resolved]
  - Implant site extravasation [Recovered/Resolved]
  - Drug ineffective for unapproved indication [Unknown]
  - Laceration [Recovered/Resolved]
  - Pain [Recovered/Resolved]
  - Mental status changes [Recovered/Resolved]
  - Cerebral haemorrhage [Recovered/Resolved]
  - Device battery issue [Recovered/Resolved]

NARRATIVE: CASE EVENT DATE: 20150820
